FAERS Safety Report 14466010 (Version 5)
Quarter: 2018Q2

REPORT INFORMATION
  Report Type: Spontaneous
  Country: US (occurrence: US)
  Receive Date: 20180131
  Receipt Date: 20180425
  Transmission Date: 20180711
  Serious: Yes (Other)
  Sender: FDA-Public Use
  Company Number: US-WEST-WARD PHARMACEUTICALS CORP.-US-H14001-17-02497

PATIENT
  Age: 22 Year
  Sex: Male

DRUGS (1)
  1. METHOTREXATE. [Suspect]
     Active Substance: METHOTREXATE
     Indication: ERYTHEMA ANNULARE
     Route: 065

REACTIONS (6)
  - Leukocytosis [Recovered/Resolved]
  - Blister [Unknown]
  - Joint stiffness [Unknown]
  - Condition aggravated [Recovering/Resolving]
  - Eosinophilia [Recovering/Resolving]
  - Joint swelling [Unknown]
